FAERS Safety Report 6759741-3 (Version None)
Quarter: 2010Q2

REPORT INFORMATION
  Report Type: 
  Country: None (occurrence: None)
  Receive Date: 20100608
  Receipt Date: 20100531
  Transmission Date: 20101027
  Serious: Yes (Other)
  Sender: FDA-Public Use
  Company Number: JP-JNJFOC-20100602026

PATIENT
  Age: 4 Decade
  Sex: Male

DRUGS (3)
  1. CRAVIT [Suspect]
     Indication: PHARYNGITIS
     Route: 048
  2. CRAVIT [Suspect]
     Indication: BRONCHITIS
     Route: 048
  3. DASEN [Concomitant]
     Route: 065

REACTIONS (4)
  - ECZEMA [None]
  - EYE SWELLING [None]
  - HOT FLUSH [None]
  - URTICARIA [None]
